FAERS Safety Report 9674618 (Version 1)
Quarter: 2013Q4

REPORT INFORMATION
  Report Type: Spontaneous
  Country: US (occurrence: None)
  Receive Date: 20131106
  Receipt Date: 20131106
  Transmission Date: 20140711
  Serious: Yes (Disabling)
  Sender: FDA-Public Use
  Company Number: None

PATIENT
  Age: 68 Year
  Sex: Female
  Weight: 74.84 kg

DRUGS (1)
  1. SOTALOL [Suspect]
     Dosage: 1 PILL
     Route: 048
     Dates: start: 20101102, end: 20130314

REACTIONS (1)
  - Lung disorder [None]
